FAERS Safety Report 25829439 (Version 1)
Quarter: 2025Q3

REPORT INFORMATION
  Report Type: Spontaneous
  Country: US (occurrence: US)
  Receive Date: 20250922
  Receipt Date: 20250922
  Transmission Date: 20251020
  Serious: No
  Sender: TRAVERE THERAPEUTICS
  Company Number: US-TRAVERE-2025TVT01332

PATIENT
  Age: 85 Year
  Sex: Male

DRUGS (1)
  1. FILSPARI [Suspect]
     Active Substance: SPARSENTAN
     Indication: IgA nephropathy
     Dosage: 200MG TAB; 2 TABLETS ONCE DAILY
     Route: 048
     Dates: start: 20250715

REACTIONS (2)
  - Headache [Recovering/Resolving]
  - Diastolic hypotension [Unknown]

NARRATIVE: CASE EVENT DATE: 20250716
